FAERS Safety Report 5452664-1 (Version None)
Quarter: 2007Q3

REPORT INFORMATION
  Report Type: 
  Country: None (occurrence: None)
  Receive Date: 20070914
  Receipt Date: 20070830
  Transmission Date: 20080115
  Serious: Yes (Death)
  Sender: FDA-Public Use
  Company Number: DE-GENENTECH-222593

PATIENT
  Sex: Male
  Weight: 88.979 kg

DRUGS (8)
  1. BEVACIZUMAB [Suspect]
     Indication: PANCREATIC CARCINOMA METASTATIC
     Dosage: 445 MG, Q2W
     Route: 042
     Dates: start: 20060117
  2. ERLOTINIB [Suspect]
     Indication: PANCREATIC CARCINOMA METASTATIC
     Dosage: 50 MG, QD
     Route: 048
     Dates: start: 20060117
  3. GEMCITABINE HCL [Suspect]
     Indication: PANCREATIC CARCINOMA METASTATIC
     Dosage: 2000 MG, 1/WEEK
     Route: 042
     Dates: start: 20060117
  4. FRAGMIN [Concomitant]
     Indication: DRUG USE FOR UNKNOWN INDICATION
  5. TRANSTEC [Concomitant]
     Indication: DRUG USE FOR UNKNOWN INDICATION
  6. GLUCOBAY [Concomitant]
     Indication: DRUG USE FOR UNKNOWN INDICATION
  7. GLUCOPHAGE [Concomitant]
     Indication: DRUG USE FOR UNKNOWN INDICATION
  8. FURESIS [Concomitant]
     Indication: DRUG USE FOR UNKNOWN INDICATION

REACTIONS (2)
  - FALL [None]
  - SUDDEN DEATH [None]
